FAERS Safety Report 8024855-7 (Version None)
Quarter: 2012Q1

REPORT INFORMATION
  Report Type: 
  Country: None (occurrence: None)
  Receive Date: 20120105
  Receipt Date: 20120104
  Transmission Date: 20120608
  Serious: Yes (Hospitalization, Other)
  Sender: FDA-Public Use
  Company Number: US-JNJFOC-20111206402

PATIENT
  Sex: Male
  Weight: 83.92 kg

DRUGS (7)
  1. SIMPONI [Suspect]
     Indication: COLITIS ULCERATIVE
     Route: 058
     Dates: start: 20080601, end: 20111101
  2. CIPROFLOXACIN [Suspect]
     Indication: GASTRIC INFECTION
     Dates: start: 20111001, end: 20111001
  3. PREDNISONE TAB [Suspect]
     Indication: COLITIS ULCERATIVE
     Route: 048
     Dates: start: 20111216
  4. PREDNISONE TAB [Suspect]
     Route: 048
     Dates: start: 20111101, end: 20111215
  5. ASACOL [Concomitant]
     Indication: COLITIS ULCERATIVE
     Route: 048
     Dates: start: 20080101
  6. CALCIUM ACETATE [Concomitant]
  7. IRON [Concomitant]

REACTIONS (6)
  - HAEMATOCHEZIA [None]
  - WEIGHT DECREASED [None]
  - INFECTION [None]
  - COLITIS ULCERATIVE [None]
  - FAECAL INCONTINENCE [None]
  - DEFAECATION URGENCY [None]
